FAERS Safety Report 12767513 (Version 1)
Quarter: 2016Q3

REPORT INFORMATION
  Report Type: Spontaneous
  Country: NG (occurrence: NG)
  Receive Date: 20160921
  Receipt Date: 20160921
  Transmission Date: 20161109
  Serious: Yes (Death)
  Sender: FDA-Public Use
  Company Number: NG-SA-2016SA172873

PATIENT
  Age: 41 Year
  Sex: Female

DRUGS (1)
  1. CLOMIFENE CITRATE [Suspect]
     Active Substance: CLOMIPHENE
     Indication: INFERTILITY FEMALE
     Route: 065

REACTIONS (13)
  - Abdominal pain upper [Fatal]
  - Invasive ductal breast carcinoma [Fatal]
  - Blood bilirubin increased [Fatal]
  - Hepatomegaly [Fatal]
  - Somnolence [Fatal]
  - Breast mass [Fatal]
  - Metastases to liver [Fatal]
  - Malaise [Fatal]
  - Ocular icterus [Fatal]
  - Hepatic enzyme increased [Fatal]
  - Nipple exudate bloody [Fatal]
  - Hepatic neoplasm [Fatal]
  - Hepatic failure [Fatal]
